FAERS Safety Report 9434654 (Version 2)
Quarter: 2013Q3

REPORT INFORMATION
  Report Type: Spontaneous
  Country: JP (occurrence: JP)
  Receive Date: 20130801
  Receipt Date: 20130816
  Transmission Date: 20140515
  Serious: Yes (Other)
  Sender: FDA-Public Use
  Company Number: JP-ELI_LILLY_AND_COMPANY-JP201307009683

PATIENT
  Age: 71 Year
  Sex: Male

DRUGS (2)
  1. HUMALOG LISPRO [Suspect]
     Route: 058
  2. LANTUS [Concomitant]
     Route: 058

REACTIONS (1)
  - Pancreatitis acute [Unknown]
